FAERS Safety Report 7577994-9 (Version None)
Quarter: 2011Q2

REPORT INFORMATION
  Report Type: 
  Country: None (occurrence: None)
  Receive Date: 20110628
  Receipt Date: 20110623
  Transmission Date: 20111010
  Serious: Yes (Hospitalization)
  Sender: FDA-Public Use
  Company Number: US-SANOFI-AVENTIS-2011SA040145

PATIENT
  Age: 67 Year
  Sex: Male

DRUGS (15)
  1. SPIRIVA [Suspect]
     Dosage: 18 MCG 2 INHALATIONS ONCE DAILY
     Route: 065
     Dates: start: 20100916
  2. ARICEPT [Concomitant]
  3. COUMADIN [Concomitant]
     Route: 065
  4. CRESTOR [Concomitant]
     Route: 065
  5. LEXAPRO [Concomitant]
     Route: 065
  6. ULTRAM [Concomitant]
  7. CRESTOR [Concomitant]
     Route: 065
  8. VITAMIN D [Concomitant]
     Route: 065
  9. WELCHOL [Concomitant]
     Route: 065
  10. METOPROLOL TARTRATE [Suspect]
  11. NEXIUM [Concomitant]
     Route: 065
  12. SYNTHROID [Concomitant]
  13. MULTAQ [Suspect]
     Route: 048
  14. NOVOLOG [Concomitant]
     Route: 065
  15. PLAVIX [Concomitant]
     Route: 065

REACTIONS (5)
  - BRADYCARDIA [None]
  - ARRHYTHMIA [None]
  - OXYGEN SATURATION DECREASED [None]
  - LUNG DISORDER [None]
  - ATRIAL FIBRILLATION [None]
